FAERS Safety Report 7968541-8 (Version None)
Quarter: 2011Q4

REPORT INFORMATION
  Report Type: 
  Country: None (occurrence: None)
  Receive Date: 20111209
  Receipt Date: 20111205
  Transmission Date: 20120403
  Serious: No
  Sender: FDA-Public Use
  Company Number: US-JNJFOC-20111202265

PATIENT
  Sex: Female
  Weight: 104.33 kg

DRUGS (7)
  1. DURAGESIC-100 [Suspect]
     Indication: ARTHRITIS
     Dosage: 100 UG/HR AND 25 UG/HR
     Route: 062
     Dates: start: 20110101
  2. ATIVAN [Concomitant]
     Indication: ANXIETY
     Route: 048
     Dates: start: 20060101
  3. HEART MEDICATION (UNKNOWN) [Concomitant]
     Indication: CARDIAC DISORDER
     Route: 065
  4. DURAGESIC-100 [Suspect]
     Indication: FIBROMYALGIA
     Dosage: 100 UG/HR AND 25 UG/HR
     Route: 062
     Dates: start: 20110101
  5. DURAGESIC-100 [Suspect]
     Indication: MARFAN'S SYNDROME
     Dosage: 100 UG/HR AND 25 UG/HR
     Route: 062
     Dates: start: 20110101
  6. REMERON [Concomitant]
     Indication: DEPRESSION
     Route: 048
     Dates: start: 20060101
  7. PREVACID [Concomitant]
     Indication: GASTROOESOPHAGEAL REFLUX DISEASE
     Route: 048

REACTIONS (3)
  - DRUG DOSE OMISSION [None]
  - WITHDRAWAL SYNDROME [None]
  - PRODUCT QUALITY ISSUE [None]
